FAERS Safety Report 16534430 (Version 1)
Quarter: 2019Q3

REPORT INFORMATION
  Report Type: Report from Study
  Country: US (occurrence: US)
  Receive Date: 20190705
  Receipt Date: 20190705
  Transmission Date: 20191004
  Serious: Yes (Other)
  Sender: FDA-Public Use
  Company Number: PHEH2019US027764

PATIENT
  Sex: Female

DRUGS (1)
  1. NEVANAC [Suspect]
     Active Substance: NEPAFENAC
     Indication: PRODUCT USED FOR UNKNOWN INDICATION
     Route: 065

REACTIONS (8)
  - Arthritis [Unknown]
  - Hypertension [Unknown]
  - Staphylococcal infection [Unknown]
  - Asthma [Unknown]
  - Uveitis [Unknown]
  - Diabetes mellitus [Unknown]
  - Photophobia [Unknown]
  - Post procedural complication [Unknown]
